FAERS Safety Report 7765431-0 (Version None)
Quarter: 2011Q3

REPORT INFORMATION
  Report Type: 
  Country: None (occurrence: None)
  Receive Date: 20110916
  Receipt Date: 20110907
  Transmission Date: 20111222
  Serious: Yes (Hospitalization)
  Sender: FDA-Public Use
  Company Number: 2011HGS-002417

PATIENT
  Age: 33 Year
  Sex: Female
  Weight: 75 kg

DRUGS (8)
  1. HYDROXYZINE [Concomitant]
  2. VITAMIN D [Concomitant]
  3. ESZOPICLONE [Concomitant]
  4. BENLYSTA [Suspect]
     Dosage: 10 MG/KG
  5. ZYRTEC [Concomitant]
  6. INDOMETHACIN [Concomitant]
  7. OMEPRAZOLE [Concomitant]
  8. TRAMADOL [Concomitant]

REACTIONS (19)
  - CHILLS [None]
  - DIARRHOEA [None]
  - URTICARIA [None]
  - HAEMOGLOBIN DECREASED [None]
  - PYREXIA [None]
  - HEADACHE [None]
  - STREPTOCOCCUS TEST POSITIVE [None]
  - GASTROINTESTINAL HAEMORRHAGE [None]
  - SEPSIS [None]
  - MALAISE [None]
  - WEIGHT DECREASED [None]
  - DEHYDRATION [None]
  - ARTHRALGIA [None]
  - NAUSEA [None]
  - LOCAL SWELLING [None]
  - ABDOMINAL PAIN LOWER [None]
  - BREATH SOUNDS ABNORMAL [None]
  - ENDOCARDITIS [None]
  - OROPHARYNGEAL PAIN [None]
